FAERS Safety Report 24007508 (Version 1)
Quarter: 2024Q2

REPORT INFORMATION
  Report Type: Spontaneous
  Country: ES (occurrence: ES)
  Receive Date: 20240625
  Receipt Date: 20240625
  Transmission Date: 20240716
  Serious: Yes (Hospitalization)
  Sender: FDA-Public Use
  Company Number: None

PATIENT
  Age: 39 Year
  Sex: Female

DRUGS (3)
  1. DIENOGEST\ESTRADIOL VALERATE [Interacting]
     Active Substance: DIENOGEST\ESTRADIOL VALERATE
     Indication: Oral contraception
     Dosage: 1DF QD
     Route: 048
     Dates: start: 20220915, end: 20240423
  2. LIRAGLUTIDE [Suspect]
     Active Substance: LIRAGLUTIDE
     Indication: Overweight
     Dosage: 1.3 MG, QD
     Route: 058
     Dates: start: 20230715, end: 20240423
  3. ISOTRETINOIN [Interacting]
     Active Substance: ISOTRETINOIN
     Indication: Rosacea
     Dosage: 5 MG, QD
     Route: 048
     Dates: start: 20220915, end: 20240423

REACTIONS (3)
  - Pregnancy on contraceptive [Recovered/Resolved]
  - Exposure during pregnancy [Recovered/Resolved]
  - Drug ineffective [Recovered/Resolved]

NARRATIVE: CASE EVENT DATE: 20231213
